FAERS Safety Report 9696933 (Version 10)
Quarter: 2014Q2

REPORT INFORMATION
  Report Type: Report from Study
  Country: RU (occurrence: RU)
  Receive Date: 20131119
  Receipt Date: 20140630
  Transmission Date: 20141212
  Serious: Yes (Life-Threatening, Hospitalization)
  Sender: FDA-Public Use
  Company Number: RU-ROCHE-1305807

PATIENT
  Age: 35 Year
  Sex: Female
  Weight: 59.5 kg

DRUGS (16)
  1. PEG-INTERFERON ALFA 2A [Suspect]
     Indication: CHRONIC HEPATITIS C
     Route: 058
     Dates: start: 20130906, end: 20131101
  2. PEG-INTERFERON ALFA 2A [Suspect]
     Route: 058
     Dates: end: 20131108
  3. PEG-INTERFERON ALFA 2A [Suspect]
     Route: 058
     Dates: start: 20130913, end: 20130913
  4. PEG-INTERFERON ALFA 2A [Suspect]
     Route: 058
     Dates: start: 20130920, end: 20130920
  5. PEG-INTERFERON ALFA 2A [Suspect]
     Route: 058
     Dates: start: 20131004, end: 20131004
  6. PEG-INTERFERON ALFA 2A [Suspect]
     Route: 058
     Dates: start: 20131011, end: 20131011
  7. RIBAVIRIN [Suspect]
     Indication: CHRONIC HEPATITIS C
     Dosage: DOSE- 2 CAPSULES AT MORNING AND 3 CAPSULES AT EVENING
     Route: 048
     Dates: start: 20130906, end: 20130906
  8. RIBAVIRIN [Suspect]
     Dosage: 4 DF
     Route: 048
     Dates: start: 20130907, end: 20130919
  9. RIBAVIRIN [Suspect]
     Dosage: DOSE- 2 CAPSULES AT MORNING AND 4 CAPSULES AT EVENING
     Route: 048
     Dates: start: 20130920, end: 20131003
  10. RIBAVIRIN [Suspect]
     Dosage: DOSE- 2 CAPSULES AT MORNING AND 4 CAPSULES AT EVENING
     Route: 048
     Dates: start: 20130920, end: 20131003
  11. RIBAVIRIN [Suspect]
     Dosage: DOSE- 2 CAPSULES AT MORNING
     Route: 048
     Dates: start: 20131004, end: 20131017
  12. RIBAVIRIN [Suspect]
     Dosage: 3 CAPSULES
     Route: 048
     Dates: start: 20130906, end: 20131108
  13. RIBAVIRIN [Suspect]
     Dosage: 2 CAPSULES
     Route: 048
     Dates: start: 20131108, end: 20131108
  14. MK-3034 [Suspect]
     Indication: CHRONIC HEPATITIS C
     Dosage: DOSE: 4 DF
     Route: 048
     Dates: start: 20131018, end: 20131107
  15. MK-3034 [Suspect]
     Dosage: 4 DF
     Route: 048
     Dates: start: 20131108, end: 20131108
  16. OMEPRAZOLE [Concomitant]
     Route: 065
     Dates: start: 20131118, end: 20140216

REACTIONS (2)
  - Uterine haemorrhage [Recovered/Resolved]
  - Thrombocytopenia [Recovered/Resolved]
